FAERS Safety Report 14068422 (Version 1)
Quarter: 2017Q4

REPORT INFORMATION
  Report Type: Spontaneous
  Country: JP (occurrence: JP)
  Receive Date: 20171010
  Receipt Date: 20171010
  Transmission Date: 20180321
  Serious: Yes (Hospitalization)
  Sender: FDA-Public Use
  Company Number: JP-ORPHAN EUROPE-2029421

PATIENT
  Age: 27 Year
  Sex: Male

DRUGS (4)
  1. FURSULTIAMINE [Concomitant]
     Active Substance: FURSULTIAMINE
     Route: 048
     Dates: start: 20170321, end: 20170621
  2. CYSTADANE [Suspect]
     Active Substance: BETAINE
     Indication: METHYLENETETRAHYDROFOLATE REDUCTASE DEFICIENCY
     Route: 048
     Dates: start: 20150819, end: 20170621
  3. MECOBALAMIN [Concomitant]
     Active Substance: METHYLCOBALAMIN
     Route: 048
     Dates: end: 20170621
  4. MAGNESIUM OXIDE. [Concomitant]
     Active Substance: MAGNESIUM OXIDE
     Route: 048
     Dates: start: 20170529, end: 20170621

REACTIONS (3)
  - Disease progression [Unknown]
  - Osteomyelitis [Recovered/Resolved]
  - Infected skin ulcer [Recovered/Resolved]

NARRATIVE: CASE EVENT DATE: 20170309
